FAERS Safety Report 7186594-4 (Version None)
Quarter: 2010Q4

REPORT INFORMATION
  Report Type: 
  Country: None (occurrence: None)
  Receive Date: 20101222
  Receipt Date: 20101208
  Transmission Date: 20110411
  Serious: Yes (Other)
  Sender: FDA-Public Use
  Company Number: US-ROCHE-727281

PATIENT
  Sex: Male
  Weight: 54.4 kg

DRUGS (4)
  1. ACCUTANE [Suspect]
     Indication: ACNE
     Route: 048
     Dates: start: 20040323, end: 20040816
  2. SOTRET [Suspect]
     Indication: ACNE
     Route: 048
     Dates: start: 20040523
  3. ZITHROMAX [Concomitant]
     Indication: ACNE
     Dates: start: 20040308
  4. SULFAMETHOXAZOLE AND TRIMETHOPRIM DOUBLE STRENGTH [Concomitant]
     Indication: ACNE
     Dates: start: 20040212

REACTIONS (8)
  - COLITIS ULCERATIVE [None]
  - CROHN'S DISEASE [None]
  - DEPRESSION [None]
  - ENTERITIS [None]
  - GASTROINTESTINAL INJURY [None]
  - ILEITIS [None]
  - INFLAMMATORY BOWEL DISEASE [None]
  - IRRITABLE BOWEL SYNDROME [None]
